FAERS Safety Report 25019808 (Version 2)
Quarter: 2025Q3

REPORT INFORMATION
  Report Type: Spontaneous
  Country: JP (occurrence: JP)
  Receive Date: 20250227
  Receipt Date: 20250929
  Transmission Date: 20251020
  Serious: Yes (Other)
  Sender: PFIZER
  Company Number: JP-ONO-2025JP003261

PATIENT
  Age: 66 Year
  Sex: Male

DRUGS (2)
  1. BRAFTOVI [Suspect]
     Active Substance: ENCORAFENIB
     Indication: Malignant melanoma
     Route: 048
  2. MEKTOVI [Suspect]
     Active Substance: BINIMETINIB
     Indication: Malignant melanoma
     Route: 048

REACTIONS (3)
  - Retinopathy [Recovered/Resolved]
  - Malignant melanoma [Unknown]
  - Malignant neoplasm progression [Unknown]
